FAERS Safety Report 5603722-X (Version None)
Quarter: 2008Q1

REPORT INFORMATION
  Report Type: 
  Country: None (occurrence: None)
  Receive Date: 20080128
  Receipt Date: 20080117
  Transmission Date: 20080703
  Serious: Yes (Hospitalization)
  Sender: FDA-Public Use
  Company Number: DE-BAYER-200811381GPV

PATIENT
  Age: 56 Year
  Sex: Female
  Weight: 80 kg

DRUGS (4)
  1. SORAFENIB [Suspect]
     Indication: RENAL CELL CARCINOMA
     Dosage: TOTAL DAILY DOSE: 800 MG
     Route: 048
     Dates: start: 20061106
  2. SORAFENIB [Suspect]
     Route: 048
     Dates: start: 20061202
  3. SORAFENIB [Suspect]
     Route: 048
     Dates: start: 20070717
  4. SORAFENIB [Suspect]
     Route: 048
     Dates: end: 20071012

REACTIONS (5)
  - DISTURBANCE IN ATTENTION [None]
  - DYSPNOEA [None]
  - FATIGUE [None]
  - OEDEMA PERIPHERAL [None]
  - PLEURAL EFFUSION [None]
